FAERS Safety Report 25451001 (Version 1)
Quarter: 2025Q2

REPORT INFORMATION
  Report Type: Spontaneous
  Country: CA (occurrence: CA)
  Receive Date: 20250618
  Receipt Date: 20250618
  Transmission Date: 20250716
  Serious: Yes (Other)
  Sender: PFIZER
  Company Number: CA-PFIZER INC-202500123304

PATIENT
  Age: 51 Year
  Sex: Female

DRUGS (3)
  1. TRAZIMERA [Suspect]
     Active Substance: TRASTUZUMAB-QYYP
  2. EXEMESTANE [Concomitant]
     Active Substance: EXEMESTANE
  3. GOSERELIN [Concomitant]
     Active Substance: GOSERELIN

REACTIONS (3)
  - Chills [Recovered/Resolved]
  - Feeling cold [Recovered/Resolved]
  - Oxygen saturation decreased [Recovered/Resolved]
